FAERS Safety Report 9655641 (Version 1)
Quarter: 2013Q4

REPORT INFORMATION
  Report Type: Report from Study
  Country: CA (occurrence: CA)
  Receive Date: 20131030
  Receipt Date: 20131030
  Transmission Date: 20140711
  Serious: Yes (Other)
  Sender: FDA-Public Use
  Company Number: CA-ROCHE-1295076

PATIENT
  Age: 54 Year
  Sex: Female

DRUGS (3)
  1. PEGASYS [Suspect]
     Indication: CHRONIC HEPATITIS C
     Dosage: 180 MCG/0.5 ML
     Route: 058
     Dates: start: 20130927, end: 20131016
  2. COPEGUS [Suspect]
     Indication: CHRONIC HEPATITIS C
     Route: 048
     Dates: start: 20130927
  3. INCIVEK [Suspect]
     Indication: HEPATITIS C
     Route: 048
     Dates: start: 20130927, end: 20131016

REACTIONS (2)
  - Insomnia [Recovered/Resolved]
  - Cardiac disorder [Recovered/Resolved]
